FAERS Safety Report 16035529 (Version 1)
Quarter: 2019Q1

REPORT INFORMATION
  Report Type: Spontaneous
  Country: US (occurrence: US)
  Receive Date: 20190305
  Receipt Date: 20190305
  Transmission Date: 20190418
  Serious: No
  Sender: FDA-Public Use
  Company Number: US-ALLERGAN-1835807US

PATIENT
  Age: 69 Year
  Sex: Female

DRUGS (5)
  1. SAVELLA [Suspect]
     Active Substance: MILNACIPRAN HYDROCHLORIDE
     Indication: FIBROMYALGIA
     Dosage: UNK
     Route: 065
     Dates: start: 20180624
  2. SAVELLA [Suspect]
     Active Substance: MILNACIPRAN HYDROCHLORIDE
     Dosage: 75 MG, UNK
     Route: 065
  3. VASOTEC [Concomitant]
     Active Substance: ENALAPRIL MALEATE
     Dosage: UNK
     Route: 065
  4. SAVELLA [Suspect]
     Active Substance: MILNACIPRAN HYDROCHLORIDE
     Dosage: 100 MG, UNK
     Route: 065
  5. TOPROL XL [Concomitant]
     Active Substance: METOPROLOL SUCCINATE
     Dosage: UNK
     Route: 065

REACTIONS (4)
  - Heart rate increased [Unknown]
  - Hyperhidrosis [Not Recovered/Not Resolved]
  - Anxiety [Not Recovered/Not Resolved]
  - Hypertension [Not Recovered/Not Resolved]
